FAERS Safety Report 4884604-8 (Version None)
Quarter: 2005Q4

REPORT INFORMATION
  Report Type: 
  Country: None (occurrence: None)
  Receive Date: 20051201
  Receipt Date: 20050912
  Transmission Date: 20060501
  Serious: No
  Sender: FDA-Public Use
  Company Number: 2005PV002339

PATIENT
  Age: 62 Year
  Sex: Male
  Weight: 108.319 kg

DRUGS (8)
  1. BYETTA [Suspect]
     Indication: DIABETES MELLITUS
     Dosage: 5 MCG; BID; SC
     Route: 058
     Dates: start: 20050101
  2. COUMADIN [Suspect]
     Indication: ATRIAL FIBRILLATION
     Dosage: 5 MG; QOD; 7.5 MG
  3. AVANDIA [Concomitant]
  4. DIGITEX [Concomitant]
  5. VYTORIN [Concomitant]
  6. AMIODARONE HCL [Concomitant]
  7. LANTUS [Concomitant]
  8. ALLEGRA [Concomitant]

REACTIONS (2)
  - HAEMATURIA [None]
  - INTERNATIONAL NORMALISED RATIO INCREASED [None]
